FAERS Safety Report 12190070 (Version 1)
Quarter: 2016Q1

REPORT INFORMATION
  Report Type: Spontaneous
  Country: US (occurrence: None)
  Receive Date: 20160317
  Receipt Date: 20160317
  Transmission Date: 20160526
  Serious: Yes (Other)
  Sender: FDA-Public Use
  Company Number: None

PATIENT
  Age: 56 Year

DRUGS (2)
  1. PLEASE REFER TO LINK REGARDING SEVERAL COMPLAINTS FROM VARIOUS PEOPLE. HTTPS://WWW.FACEBOOK.COM/WALMART4623/POSTS/652139471518251?COMMENT_ID=99685460371340 L-,IF T=FEED COMMENT [Concomitant]
  2. LEVOTHYROXIN [Suspect]
     Active Substance: LEVOTHYROXINE
     Indication: THYROID DISORDER
     Dosage: VARIOUS ONCE DAILY

REACTIONS (2)
  - Product quality issue [None]
  - Adverse drug reaction [None]

NARRATIVE: CASE EVENT DATE: 20160315
